FAERS Safety Report 6861191-6 (Version None)
Quarter: 2010Q3

REPORT INFORMATION
  Report Type: 
  Country: None (occurrence: None)
  Receive Date: 20100720
  Receipt Date: 20100712
  Transmission Date: 20110219
  Serious: Yes (Other)
  Sender: FDA-Public Use
  Company Number: US-ABBOTT-10P-163-0656852-00

PATIENT
  Sex: Female

DRUGS (1)
  1. SYNTHROID [Suspect]
     Indication: PRODUCT USED FOR UNKNOWN INDICATION
     Dates: start: 20090101, end: 20090101

REACTIONS (6)
  - CONVULSION [None]
  - FEAR [None]
  - GLOSSODYNIA [None]
  - HAEMORRHAGE [None]
  - TONGUE INJURY [None]
  - TREMOR [None]
